FAERS Safety Report 17172021 (Version 2)
Quarter: 2019Q4

REPORT INFORMATION
  Report Type: Report from Study
  Country: IN (occurrence: IN)
  Receive Date: 20191219
  Receipt Date: 20191227
  Transmission Date: 20200122
  Serious: Yes (Hospitalization)
  Sender: FDA-Public Use
  Company Number: NVSC2019IN069080

PATIENT
  Age: 64 Year

DRUGS (25)
  1. EMGRAST [Concomitant]
     Active Substance: FILGRASTIM
     Indication: PROPHYLAXIS
     Dosage: UNK
     Route: 065
     Dates: start: 20191130, end: 20191204
  2. INJ FORCAN [Concomitant]
     Indication: PNEUMONIA
     Route: 065
     Dates: start: 20191211
  3. COMPARATOR NAB-PACLITAXEL [Suspect]
     Active Substance: PACLITAXEL
     Indication: PRODUCT USED FOR UNKNOWN INDICATION
     Dosage: UNK
     Route: 042
     Dates: start: 20191129
  4. POTKLOR [Concomitant]
     Indication: GENERAL PHYSICAL CONDITION
     Route: 065
     Dates: start: 20191216, end: 20191218
  5. PANTOFIT D [Concomitant]
     Indication: GENERAL PHYSICAL CONDITION
     Route: 065
     Dates: start: 20191130, end: 20191204
  6. ZINCOVIT [Concomitant]
     Indication: GENERAL PHYSICAL CONDITION
     Dosage: UNK
     Route: 065
     Dates: start: 20191130, end: 20191211
  7. PANTOCID [Concomitant]
     Indication: PNEUMONIA
     Route: 065
     Dates: start: 20191211, end: 20191218
  8. NEBULIZATION DUOLIN [Concomitant]
     Indication: PNEUMONIA
     Route: 065
     Dates: start: 20191211
  9. MEROPENEM. [Concomitant]
     Active Substance: MEROPENEM
     Indication: PNEUMONIA
     Route: 065
     Dates: start: 20191211
  10. BUDESONIDE CIPLA [Concomitant]
     Active Substance: BUDESONIDE
     Indication: PNEUMONIA
     Route: 065
     Dates: start: 20191211, end: 20191217
  11. COMPARATOR PEMBROLIZUMAB [Suspect]
     Active Substance: PEMBROLIZUMAB
     Indication: PRODUCT USED FOR UNKNOWN INDICATION
     Dosage: UNK
     Route: 042
     Dates: start: 20191129
  12. COMPARATOR CARBOPLATIN [Suspect]
     Active Substance: CARBOPLATIN
     Indication: PRODUCT USED FOR UNKNOWN INDICATION
     Dosage: UNK
     Route: 042
     Dates: start: 20191129
  13. ULTRACET [Concomitant]
     Active Substance: ACETAMINOPHEN\TRAMADOL HYDROCHLORIDE
     Indication: GENERAL PHYSICAL CONDITION
     Dosage: UNK
     Route: 065
     Dates: start: 20191130
  14. PANTOPRAZOL [Concomitant]
     Active Substance: PANTOPRAZOLE SODIUM
     Indication: GENERAL PHYSICAL CONDITION
     Dosage: UNK
     Route: 065
     Dates: start: 20191129, end: 20191129
  15. INJ TARGOCID 400 [Concomitant]
     Indication: PNEUMONIA
     Route: 065
     Dates: start: 20191211
  16. PEMBROLIZUMAB. [Suspect]
     Active Substance: PEMBROLIZUMAB
     Indication: NON-SMALL CELL LUNG CANCER
     Dosage: UNK
     Route: 058
     Dates: start: 20191129
  17. FAMODITINE [Concomitant]
     Active Substance: FAMOTIDINE
     Indication: GENERAL PHYSICAL CONDITION
     Dosage: UNK
     Route: 065
     Dates: start: 20191129, end: 20191129
  18. LOOZ [Concomitant]
     Indication: GENERAL PHYSICAL CONDITION
     Dosage: UNK
     Route: 065
     Dates: start: 20191129
  19. EMESET [Concomitant]
     Active Substance: ONDANSETRON HYDROCHLORIDE
     Indication: GENERAL PHYSICAL CONDITION
     Dosage: UNK
     Route: 065
     Dates: start: 20191129, end: 20191129
  20. EMESET [Concomitant]
     Active Substance: ONDANSETRON HYDROCHLORIDE
     Dosage: UNK
     Route: 065
     Dates: start: 20191130
  21. EMESET [Concomitant]
     Active Substance: ONDANSETRON HYDROCHLORIDE
     Dosage: UNK
     Route: 065
     Dates: start: 20191211, end: 20191216
  22. AVIL [Concomitant]
     Active Substance: PHENIRAMINE
     Indication: GENERAL PHYSICAL CONDITION
     Dosage: UNK
     Route: 065
     Dates: start: 20191129, end: 20191129
  23. EFFCORLIN [Concomitant]
     Active Substance: HYDROCORTISONE SODIUM SUCCINATE
     Indication: PNEUMONIA
     Route: 065
     Dates: start: 20191211, end: 20191218
  24. IVABRAD [Concomitant]
     Indication: GENERAL PHYSICAL CONDITION
     Route: 065
     Dates: start: 20191212, end: 20191212
  25. DEEXA [Concomitant]
     Indication: PREMEDICATION
     Route: 065
     Dates: start: 20191129, end: 20191129

REACTIONS (2)
  - Pneumonia [Not Recovered/Not Resolved]
  - Sepsis [Not Recovered/Not Resolved]

NARRATIVE: CASE EVENT DATE: 20191211
